FAERS Safety Report 7871414-2 (Version None)
Quarter: 2011Q4

REPORT INFORMATION
  Report Type: 
  Country: None (occurrence: None)
  Receive Date: 20111027
  Receipt Date: 20111013
  Transmission Date: 20120403
  Serious: Yes (Death, Hospitalization)
  Sender: FDA-Public Use
  Company Number: 2011MPI00228

PATIENT
  Age: 70 Year
  Sex: Female

DRUGS (5)
  1. BRENTUXIMAB VEDOTIN (BRENTUXIMAB VEDOTIN) INJECTION [Suspect]
     Indication: LYMPHOMA
     Dosage: 1.8 MG/KG, INTRAVENOUS
     Route: 042
     Dates: start: 20110713, end: 20110803
  2. FOLIC ACID [Concomitant]
  3. ACETAMINOPHEN [Concomitant]
  4. ONDANSETRON [Concomitant]
  5. LEVOTHYROXINE SODIUM [Concomitant]

REACTIONS (2)
  - SEPSIS [None]
  - LOWER RESPIRATORY TRACT INFECTION [None]
